FAERS Safety Report 15362894 (Version 1)
Quarter: 2018Q3

REPORT INFORMATION
  Report Type: Report from Study
  Country: US (occurrence: US)
  Receive Date: 20180907
  Receipt Date: 20180907
  Transmission Date: 20181010
  Serious: Yes (Hospitalization)
  Sender: FDA-Public Use
  Company Number: US-MALLINCKRODT-T201801972

PATIENT
  Sex: Female

DRUGS (2)
  1. REPOSITORY CORTICOTROPIN INJECTION [Suspect]
     Active Substance: CORTICOTROPIN
     Indication: IRIDOCYCLITIS
     Dosage: 80 UNITS/1 ML, EVERY 3 DAYS / EVERY 72 HOURS
     Route: 058
     Dates: end: 201806
  2. REPOSITORY CORTICOTROPIN INJECTION [Suspect]
     Active Substance: CORTICOTROPIN
     Indication: UVEITIS
     Dosage: 80 UNITS/1 ML, EVERY 3 DAYS/EVERY 72 HOURS
     Route: 058
     Dates: start: 20180503

REACTIONS (10)
  - Palpitations [Unknown]
  - Throat irritation [None]
  - Influenza like illness [Unknown]
  - Glucose tolerance impaired [Unknown]
  - Headache [Not Recovered/Not Resolved]
  - Tinnitus [Not Recovered/Not Resolved]
  - Eye pain [Not Recovered/Not Resolved]
  - Oropharyngeal pain [Recovering/Resolving]
  - Drug dose omission [Unknown]
  - Nasopharyngitis [Not Recovered/Not Resolved]

NARRATIVE: CASE EVENT DATE: 2018
